FAERS Safety Report 19438350 (Version 1)
Quarter: 2021Q2

REPORT INFORMATION
  Report Type: Spontaneous
  Country: US (occurrence: US)
  Receive Date: 20210618
  Receipt Date: 20210618
  Transmission Date: 20210717
  Serious: Yes (Hospitalization, Congenital Anomaly, Other)
  Sender: FDA-Public Use
  Company Number: US-ASTRAZENECA-2021A539738

PATIENT

DRUGS (9)
  1. NEXIUM [Suspect]
     Active Substance: ESOMEPRAZOLE MAGNESIUM
     Indication: PRODUCT USED FOR UNKNOWN INDICATION
     Dosage: UNK
     Route: 048
  2. PRILOSEC OTC [Suspect]
     Active Substance: OMEPRAZOLE MAGNESIUM
     Indication: PRODUCT USED FOR UNKNOWN INDICATION
     Dosage: UNK
     Route: 048
  3. PROTONIX [Suspect]
     Active Substance: PANTOPRAZOLE SODIUM
     Indication: GASTROOESOPHAGEAL REFLUX DISEASE
     Dosage: UNK
     Route: 065
  4. PROTONIX [Suspect]
     Active Substance: PANTOPRAZOLE SODIUM
     Indication: PRODUCT USED FOR UNKNOWN INDICATION
     Dosage: UNK
     Route: 065
  5. PROTONIX [Suspect]
     Active Substance: PANTOPRAZOLE SODIUM
     Indication: PRODUCT USED FOR UNKNOWN INDICATION
     Dosage: 40 MG, UNK GENERIC
     Route: 065
  6. PREVACID [Suspect]
     Active Substance: LANSOPRAZOLE
     Indication: GASTROOESOPHAGEAL REFLUX DISEASE
     Dosage: 30 MG, UNK
     Route: 065
  7. PRILOSEC [Suspect]
     Active Substance: OMEPRAZOLE MAGNESIUM
     Indication: PRODUCT USED FOR UNKNOWN INDICATION
     Dosage: UNK
     Route: 048
  8. PROTONIX [Suspect]
     Active Substance: PANTOPRAZOLE SODIUM
     Indication: GASTROOESOPHAGEAL REFLUX DISEASE
     Dosage: 40 MG, UNK GENERIC
     Route: 065
  9. PREVACID 24 HR [Suspect]
     Active Substance: LANSOPRAZOLE
     Indication: GASTROOESOPHAGEAL REFLUX DISEASE
     Dosage: 30 MG, UNK30.0MG UNKNOWN
     Route: 065

REACTIONS (19)
  - Proteinuria [Unknown]
  - Blood creatinine increased [Unknown]
  - Chronic kidney disease [Not Recovered/Not Resolved]
  - Focal segmental glomerulosclerosis [Unknown]
  - Renal failure [Not Recovered/Not Resolved]
  - Tubulointerstitial nephritis [Unknown]
  - Blood urea increased [Unknown]
  - End stage renal disease [Not Recovered/Not Resolved]
  - Renal cyst [Unknown]
  - Acute kidney injury [Not Recovered/Not Resolved]
  - Nephrosclerosis [Unknown]
  - Urinary tract obstruction [Unknown]
  - Glycosuria [Unknown]
  - Hydronephrosis [Unknown]
  - Nocturia [Unknown]
  - Haematuria [Unknown]
  - Dialysis [Not Recovered/Not Resolved]
  - Renal transplant [Not Recovered/Not Resolved]
  - Biopsy kidney [Unknown]
